FAERS Safety Report 23602688 (Version 1)
Quarter: 2024Q1

REPORT INFORMATION
  Report Type: Spontaneous
  Country: US (occurrence: US)
  Receive Date: 20240306
  Receipt Date: 20240306
  Transmission Date: 20240410
  Serious: No
  Sender: FDA-Public Use
  Company Number: US-Calliditas-2024CAL00330

PATIENT
  Age: 42 Year
  Sex: Male
  Weight: 63.7 kg

DRUGS (1)
  1. TARPEYO [Suspect]
     Active Substance: BUDESONIDE
     Indication: IgA nephropathy
     Route: 048
     Dates: start: 20231005

REACTIONS (2)
  - Muscle twitching [Recovered/Resolved]
  - Ocular discomfort [Recovered/Resolved]
